FAERS Safety Report 9056880 (Version 1)
Quarter: 2013Q1

REPORT INFORMATION
  Report Type: Report from Study
  Country: BE (occurrence: BE)
  Receive Date: 20130201
  Receipt Date: 20130201
  Transmission Date: 20140127
  Serious: Yes (Hospitalization)
  Sender: FDA-Public Use
  Company Number: BE-GLAXOSMITHKLINE-B0861783A

PATIENT
  Age: 71 None
  Sex: 0
  Weight: 73 kg

DRUGS (5)
  1. PAZOPANIB [Suspect]
     Indication: OVARIAN CANCER
     Dosage: 400MG PER DAY
     Route: 048
     Dates: start: 20120916
  2. PACLITAXEL [Suspect]
     Indication: OVARIAN CANCER
     Dosage: 55MG WEEKLY
     Route: 042
     Dates: start: 20120918
  3. CARBOPLATIN [Suspect]
     Indication: OVARIAN CANCER
     Dosage: 173MG WEEKLY
     Route: 042
     Dates: start: 20120918
  4. LORMETAZEPAM [Concomitant]
     Indication: SLEEP DISORDER
     Dosage: 100MG AS REQUIRED
     Route: 048
     Dates: start: 20110111
  5. LITICAN [Concomitant]
     Indication: NAUSEA
     Dosage: 50MG AS REQUIRED
     Route: 048
     Dates: start: 20121128

REACTIONS (1)
  - Cellulitis [Recovered/Resolved]
